FAERS Safety Report 4975054-4 (Version None)
Quarter: 2006Q2

REPORT INFORMATION
  Report Type: 
  Country: None (occurrence: None)
  Receive Date: 20060418
  Receipt Date: 20060131
  Transmission Date: 20061013
  Serious: Yes (Other)
  Sender: FDA-Public Use
  Company Number: JP-ROCHE-436421

PATIENT
  Age: 27 Year
  Sex: Female
  Weight: 47 kg

DRUGS (2)
  1. TAMIFLU [Suspect]
     Route: 048
     Dates: start: 20060129, end: 20060129
  2. CALONAL [Concomitant]
     Route: 048
     Dates: start: 20060129, end: 20060131

REACTIONS (1)
  - ENTEROCOLITIS HAEMORRHAGIC [None]
